FAERS Safety Report 8159421-6 (Version None)
Quarter: 2012Q1

REPORT INFORMATION
  Report Type: 
  Country: None (occurrence: None)
  Receive Date: 20120223
  Receipt Date: 20120216
  Transmission Date: 20120608
  Serious: Yes (Death, Other)
  Sender: FDA-Public Use
  Company Number: US-PFIZER INC-US-WYE-H02048308

PATIENT
  Age: 49 Year
  Sex: Male

DRUGS (9)
  1. LISINOPRIL [Suspect]
     Dosage: OVERDOSE (AMOUNT UNKNOWN)
     Route: 048
     Dates: start: 20060101, end: 20060101
  2. TRAZODONE HCL [Suspect]
     Dosage: OVERDOSE (AMOUNT UNKNOWN)
     Route: 048
     Dates: start: 20060101, end: 20060101
  3. LISINOPRIL AND HYDROCHLOROTHIAZIDE [Suspect]
     Dosage: OVERDOSE (AMOUNT UNKNOWN)
     Route: 048
     Dates: start: 20060101, end: 20060101
  4. HYDROXYZINE HCL [Suspect]
     Dosage: OVERDOSE (AMOUNT UNKNOWN)
     Route: 048
     Dates: start: 20060101, end: 20060101
  5. FUROSEMIDE [Suspect]
     Dosage: OVERDOSE (AMOUNT UNKNOWN)
     Route: 048
     Dates: start: 20060101, end: 20060101
  6. LAMOTRIGINE [Suspect]
     Dosage: OVERDOSE (AMOUNT UNKNOWN)
     Route: 048
     Dates: start: 20060101, end: 20060101
  7. SILDENAFIL CITRATE [Suspect]
     Dosage: OVERDOSE (AMOUNT UNKNOWN)
     Route: 048
     Dates: start: 20060101, end: 20060101
  8. EFFEXOR [Suspect]
     Dosage: OVERDOSE (AMOUNT UNKNOWN)
     Route: 048
     Dates: start: 20060101, end: 20060101
  9. GABAPENTIN [Suspect]
     Dosage: OVERDOSE (AMOUNT UNKNOWN)
     Route: 048
     Dates: start: 20060101, end: 20060101

REACTIONS (4)
  - INTENTIONAL OVERDOSE [None]
  - CARDIAC ARREST [None]
  - RESPIRATORY ARREST [None]
  - COMPLETED SUICIDE [None]
